FAERS Safety Report 9626133 (Version 1)
Quarter: 2013Q4

REPORT INFORMATION
  Report Type: Spontaneous
  Country: US (occurrence: None)
  Receive Date: 20131015
  Receipt Date: 20131015
  Transmission Date: 20140711
  Serious: No
  Sender: FDA-Public Use
  Company Number: None

PATIENT
  Age: 45 Year
  Sex: Female
  Weight: 60.33 kg

DRUGS (2)
  1. DOXYCYCLINE HYCLATE [Suspect]
     Indication: SKIN DISORDER
     Dosage: 1 PILL; ONCE DAILY
     Route: 048
     Dates: start: 20130929, end: 20130930
  2. DOXYCYCLINE HYCLATE [Suspect]
     Indication: INFLAMMATION
     Dosage: 1 PILL; ONCE DAILY
     Route: 048
     Dates: start: 20130929, end: 20130930

REACTIONS (15)
  - Dyspnoea [None]
  - Blood pressure increased [None]
  - Heart rate increased [None]
  - Chest discomfort [None]
  - Abdominal pain upper [None]
  - Headache [None]
  - Eye pain [None]
  - Ear discomfort [None]
  - Ear pain [None]
  - Sinus headache [None]
  - Musculoskeletal stiffness [None]
  - Body temperature increased [None]
  - Decreased appetite [None]
  - Diarrhoea [None]
  - Ill-defined disorder [None]
